FAERS Safety Report 17217324 (Version 1)
Quarter: 2019Q4

REPORT INFORMATION
  Report Type: Report from Study
  Country: None (occurrence: RO)
  Receive Date: 20191231
  Receipt Date: 20191231
  Transmission Date: 20200122
  Serious: Yes (Death)
  Sender: FDA-Public Use
  Company Number: RO-ABBVIE-19K-135-3214930-00

PATIENT
  Age: 77 Year
  Sex: Female

DRUGS (1)
  1. DUODOPA [Suspect]
     Active Substance: CARBIDOPA\LEVODOPA
     Indication: PARKINSON^S DISEASE
     Dosage: DM=13.00??DC=4.10??ED=4.00??NRED=0;??DMN=0.00??DCN=0.00??EDN=0.00??NREDN=0
     Route: 050
     Dates: start: 20160211, end: 20191230

REACTIONS (1)
  - Cardio-respiratory arrest [Fatal]

NARRATIVE: CASE EVENT DATE: 20191230
